FAERS Safety Report 9159939 (Version 3)
Quarter: 2013Q2

REPORT INFORMATION
  Report Type: Spontaneous
  Country: US (occurrence: US)
  Receive Date: 20130313
  Receipt Date: 20130510
  Transmission Date: 20140414
  Serious: Yes (Other)
  Sender: FDA-Public Use
  Company Number: US-PFIZER INC-2013083259

PATIENT
  Sex: Male

DRUGS (1)
  1. DILANTIN-125 [Suspect]
     Dosage: 5/100 MG TAB PER DAY
     Route: 048

REACTIONS (3)
  - Deafness [Unknown]
  - Visual impairment [Unknown]
  - Tooth disorder [Unknown]
